FAERS Safety Report 13775129 (Version 2)
Quarter: 2017Q3

REPORT INFORMATION
  Report Type: Spontaneous
  Country: US (occurrence: US)
  Receive Date: 20170720
  Receipt Date: 20170727
  Transmission Date: 20171127
  Serious: No
  Sender: FDA-Public Use
  Company Number: US-009507513-1707USA004789

PATIENT
  Age: 42 Year
  Sex: Female
  Weight: 58.05 kg

DRUGS (1)
  1. BELSOMRA [Suspect]
     Active Substance: SUVOREXANT
     Indication: INSOMNIA
     Dosage: 10 MG/PER NIGHT
     Route: 048

REACTIONS (3)
  - Fatigue [Unknown]
  - Drug ineffective [Unknown]
  - Anxiety [Unknown]
